FAERS Safety Report 8077264-9 (Version None)
Quarter: 2012Q1

REPORT INFORMATION
  Report Type: 
  Country: None (occurrence: None)
  Receive Date: 20120127
  Receipt Date: 20120120
  Transmission Date: 20120608
  Serious: Yes (Hospitalization)
  Sender: FDA-Public Use
  Company Number: US-AMGEN-USASP2012000939

PATIENT
  Age: 58 Year
  Sex: Female

DRUGS (13)
  1. INSULIN [Concomitant]
  2. DILAUDID [Concomitant]
  3. LORAZEPAM [Concomitant]
  4. ALBUTEROL [Concomitant]
  5. ZANTAC [Concomitant]
  6. VERAPAMIL [Concomitant]
  7. XGEVA [Suspect]
     Indication: METASTASES TO BONE
     Dosage: 120 MG, Q4WK
     Route: 058
     Dates: start: 20111222, end: 20111222
  8. GABAPENTIN [Concomitant]
  9. FENOFIBRATE [Concomitant]
  10. CALCIUM [Concomitant]
  11. LOMOTIL [Concomitant]
  12. FLEXERIL [Concomitant]
  13. SYNTHROID [Concomitant]

REACTIONS (5)
  - VOMITING [None]
  - HYPOCALCAEMIA [None]
  - FATIGUE [None]
  - BLOOD MAGNESIUM DECREASED [None]
  - NAUSEA [None]
